FAERS Safety Report 7788001-7 (Version None)
Quarter: 2011Q3

REPORT INFORMATION
  Report Type: 
  Country: None (occurrence: None)
  Receive Date: 20110930
  Receipt Date: 20090701
  Transmission Date: 20111222
  Serious: No
  Sender: FDA-Public Use
  Company Number: 2009BI020302

PATIENT
  Age: 50 Year
  Sex: Female

DRUGS (1)
  1. TYSABRI [Suspect]
     Indication: MULTIPLE SCLEROSIS
     Route: 042
     Dates: start: 20090203

REACTIONS (6)
  - GAIT DISTURBANCE [None]
  - DEPRESSION [None]
  - INFECTION [None]
  - WEIGHT INCREASED [None]
  - ARTHRITIS INFECTIVE [None]
  - FEELING ABNORMAL [None]
